FAERS Safety Report 8241452-9 (Version None)
Quarter: 2012Q1

REPORT INFORMATION
  Report Type: 
  Country: None (occurrence: None)
  Receive Date: 20120328
  Receipt Date: 20120316
  Transmission Date: 20120608
  Serious: Yes (Hospitalization, Disabling)
  Sender: FDA-Public Use
  Company Number: GB-ELI_LILLY_AND_COMPANY-GB201203005151

PATIENT
  Age: 80 Year
  Sex: Male

DRUGS (1)
  1. DULOXETINE HYDROCHLORIDE [Suspect]
     Indication: ABNORMAL BEHAVIOUR
     Dosage: 90 MG, UNKNOWN

REACTIONS (5)
  - TACHYCARDIA [None]
  - TREMOR [None]
  - HYPOTENSION [None]
  - OFF LABEL USE [None]
  - HYPERHIDROSIS [None]
